FAERS Safety Report 9001392 (Version 6)
Quarter: 2014Q3

REPORT INFORMATION
  Report Type: Spontaneous
  Country: US (occurrence: US)
  Receive Date: 20130107
  Receipt Date: 20140924
  Transmission Date: 20150326
  Serious: Yes (Hospitalization, Other)
  Sender: FDA-Public Use
  Company Number: US-009507513-1203USA00779

PATIENT
  Sex: Female
  Weight: 57.14 kg

DRUGS (9)
  1. FOSAMAX PLUS D [Suspect]
     Active Substance: ALENDRONATE SODIUM\CHOLECALCIFEROL
     Dosage: 2800, QW
     Route: 048
     Dates: start: 20060306, end: 20061120
  2. FOSAMAX [Suspect]
     Active Substance: ALENDRONATE SODIUM
     Indication: OSTEOPOROSIS
     Dosage: 5 MG, QD
     Route: 048
     Dates: start: 20000819, end: 20040521
  3. FOSAMAX [Suspect]
     Active Substance: ALENDRONATE SODIUM
     Indication: OSTEOPENIA
     Dosage: 10 MG, UNK
     Route: 048
     Dates: start: 20010816, end: 200703
  4. FOSAMAX [Suspect]
     Active Substance: ALENDRONATE SODIUM
     Dosage: 70 MG, UNK
     Route: 048
     Dates: start: 200808
  5. BONIVA [Suspect]
     Active Substance: IBANDRONATE SODIUM
     Indication: OSTEOPOROSIS
     Dosage: 150 MG, QM
     Dates: start: 200703, end: 201012
  6. ACTONEL [Suspect]
     Active Substance: RISEDRONATE SODIUM
     Indication: OSTEOPOROSIS
     Dates: start: 200406, end: 200412
  7. ACTONEL [Suspect]
     Active Substance: RISEDRONATE SODIUM
     Indication: OSTEOPENIA
  8. BONIVA [Suspect]
     Active Substance: IBANDRONATE SODIUM
     Indication: OSTEOPENIA
  9. FOSAMAX [Suspect]
     Active Substance: ALENDRONATE SODIUM
     Dosage: 70 MG, UNK
     Route: 048
     Dates: start: 20070219

REACTIONS (35)
  - Femur fracture [Unknown]
  - Anxiety [Unknown]
  - Oedema peripheral [Unknown]
  - Hip fracture [Unknown]
  - Tendonitis [Unknown]
  - Depression [Unknown]
  - Cholesteatoma [Unknown]
  - Pubis fracture [Unknown]
  - Intramedullary rod insertion [Unknown]
  - Low turnover osteopathy [Unknown]
  - Lumbar spinal stenosis [Unknown]
  - Fall [Unknown]
  - Decreased activity [Unknown]
  - Balance disorder [Unknown]
  - Pelvic fracture [Recovering/Resolving]
  - Intramedullary rod insertion [Unknown]
  - Rib fracture [Unknown]
  - Knee operation [Unknown]
  - Osteoarthritis [Unknown]
  - Vitamin D deficiency [Unknown]
  - Musculoskeletal disorder [Unknown]
  - Femur fracture [Unknown]
  - Spinal osteoarthritis [Unknown]
  - Weight increased [Unknown]
  - Ear operation [Unknown]
  - Intramedullary rod insertion [Unknown]
  - Fall [Unknown]
  - Device failure [Unknown]
  - Hypercholesterolaemia [Unknown]
  - Glaucoma [Unknown]
  - Scoliosis [Unknown]
  - Femur fracture [Unknown]
  - Osteoarthritis [Unknown]
  - Ulcer [Unknown]
  - Fractured sacrum [Unknown]

NARRATIVE: CASE EVENT DATE: 200309
